FAERS Safety Report 13027430 (Version 1)
Quarter: 2016Q4

REPORT INFORMATION
  Report Type: Spontaneous
  Country: FR (occurrence: FR)
  Receive Date: 20161214
  Receipt Date: 20161214
  Transmission Date: 20170207
  Serious: Yes (Hospitalization, Other)
  Sender: FDA-Public Use
  Company Number: FR-EMCURE PHARMS-2016HTG00299

PATIENT
  Age: 68 Year
  Sex: Male

DRUGS (7)
  1. CYTARABINE SANDOZ [Suspect]
     Active Substance: CYTARABINE
     Indication: PRODUCT USED FOR UNKNOWN INDICATION
     Dosage: 370 MG, 1X/DAY
     Route: 042
     Dates: start: 20160903, end: 20160906
  2. ENDOXAN [Suspect]
     Active Substance: CYCLOPHOSPHAMIDE
     Indication: PRODUCT USED FOR UNKNOWN INDICATION
     Dosage: 2660 MG, 1X/DAY
     Route: 042
     Dates: start: 20160903, end: 20160906
  3. BISPROLOL FUMARATE [Concomitant]
     Active Substance: BISOPROLOL FUMARATE
     Dosage: 2.5 MG, 1X/DAY
  4. BICNU [Suspect]
     Active Substance: CARMUSTINE
     Indication: PRODUCT USED FOR UNKNOWN INDICATION
     Dosage: 561 MG, UNK
     Route: 042
     Dates: start: 20160901, end: 20160901
  5. ETOPOSIDE MYLAN [Suspect]
     Active Substance: ETOPOSIDE
     Indication: PRODUCT USED FOR UNKNOWN INDICATION
     Dosage: 380100 MG, 1X/DAY
     Route: 042
     Dates: start: 20160903, end: 20160906
  6. BARACLUDE [Concomitant]
     Active Substance: ENTECAVIR
     Dosage: 0.5 MG, 1X/DAY
  7. AMIODARONE [Concomitant]
     Active Substance: AMIODARONE
     Dosage: 200 MG, 1X/DAY

REACTIONS (13)
  - Livedo reticularis [Unknown]
  - Hepatitis alcoholic [None]
  - Pneumonia klebsiella [Recovered/Resolved]
  - Oliguria [Unknown]
  - Aplasia [Recovered/Resolved]
  - Sepsis [Recovered/Resolved]
  - Chills [Unknown]
  - Pleural effusion [Recovered/Resolved]
  - Oxygen saturation decreased [Recovered/Resolved]
  - Diarrhoea [Unknown]
  - Dyspnoea [Recovered/Resolved]
  - Pyrexia [Unknown]
  - Pulmonary embolism [None]

NARRATIVE: CASE EVENT DATE: 20160907
